FAERS Safety Report 7707202-7 (Version None)
Quarter: 2011Q3

REPORT INFORMATION
  Report Type: 
  Country: None (occurrence: None)
  Receive Date: 20110824
  Receipt Date: 20110818
  Transmission Date: 20111222
  Serious: Yes (Hospitalization, Other)
  Sender: FDA-Public Use
  Company Number: US-BAYER-201025834NA

PATIENT
  Age: 25 Year
  Sex: Female
  Weight: 80.726 kg

DRUGS (10)
  1. YAZ [Suspect]
     Indication: CONTRACEPTION
     Dosage: UNK UNK, QD
     Route: 048
     Dates: start: 20071130, end: 20080120
  2. CELEXA [Concomitant]
  3. MS CONTIN [Concomitant]
  4. FLOVENT [Concomitant]
  5. LORTAB [Concomitant]
  6. LORAZEPAM [Concomitant]
  7. PHENERGAN HCL [Concomitant]
  8. YAZ [Suspect]
     Indication: ACNE
  9. ALBUTEROL SULFATE AUTOHALER [Concomitant]
     Dosage: UNK
     Dates: start: 20000101
  10. PULMICORT [Concomitant]

REACTIONS (2)
  - PAIN [None]
  - PULMONARY EMBOLISM [None]
